FAERS Safety Report 9060273 (Version 1)
Quarter: 2013Q1

REPORT INFORMATION
  Report Type: Spontaneous
  Country: US (occurrence: None)
  Receive Date: 20130207
  Receipt Date: 20130207
  Transmission Date: 20140127
  Serious: Yes (Hospitalization)
  Sender: FDA-Public Use
  Company Number: None

PATIENT
  Sex: Female

DRUGS (1)
  1. ABILIFY [Suspect]
     Indication: BIPOLAR DISORDER
     Route: 048
     Dates: start: 2005, end: 2006

REACTIONS (11)
  - Speech disorder [None]
  - Paralysis [None]
  - Motor dysfunction [None]
  - Headache [None]
  - Sleep disorder [None]
  - Tremor [None]
  - Decreased appetite [None]
  - Arrhythmia [None]
  - Heart rate increased [None]
  - Dyspnoea [None]
  - Restless legs syndrome [None]
